FAERS Safety Report 10035360 (Version 1)
Quarter: 2014Q1

REPORT INFORMATION
  Report Type: Spontaneous
  Country: GB (occurrence: GB)
  Receive Date: 20140325
  Receipt Date: 20140325
  Transmission Date: 20141002
  Serious: Yes (Other)
  Sender: FDA-Public Use
  Company Number: GB-WATSON-2014-05274

PATIENT
  Age: 37 Year
  Sex: Female
  Weight: 63 kg

DRUGS (4)
  1. NAPROXEN (UNKNOWN) [Suspect]
     Indication: BACK PAIN
     Dosage: 250 MG, TID
     Route: 048
     Dates: start: 20140224, end: 20140225
  2. BUDESONIDE [Concomitant]
     Indication: ASTHMA
     Dosage: UNK
     Route: 065
  3. CETIRIZINE [Concomitant]
     Indication: PRODUCT USED FOR UNKNOWN INDICATION
     Dosage: UNK
     Route: 065
  4. VENTOLIN                           /00139501/ [Concomitant]
     Indication: PRODUCT USED FOR UNKNOWN INDICATION
     Dosage: UNK
     Route: 065

REACTIONS (6)
  - Local swelling [Recovering/Resolving]
  - Pruritus [Recovering/Resolving]
  - Paraesthesia oral [Recovered/Resolved]
  - Oral pruritus [Recovered/Resolved]
  - Skin exfoliation [Recovering/Resolving]
  - Chest discomfort [Recovered/Resolved]
